FAERS Safety Report 25271057 (Version 1)
Quarter: 2025Q2

REPORT INFORMATION
  Report Type: Spontaneous
  Country: TR (occurrence: TR)
  Receive Date: 20250506
  Receipt Date: 20250506
  Transmission Date: 20250717
  Serious: Yes (Hospitalization)
  Sender: AAVIS PHARMACEUTICALS
  Company Number: TR-AVS-000046

PATIENT
  Age: 6 Year
  Sex: Female

DRUGS (8)
  1. HYDROXYCHLOROQUINE [Suspect]
     Active Substance: HYDROXYCHLOROQUINE
     Indication: Pulmonary haemosiderosis
     Dosage: DIVIDED IN TO TWO DOSES (2MG/KG/D)
     Route: 065
  2. METHYLPREDNISOLONE [Suspect]
     Active Substance: METHYLPREDNISOLONE
     Indication: Pulmonary haemosiderosis
     Route: 065
  3. CLARITHROMYCIN [Suspect]
     Active Substance: CLARITHROMYCIN
     Indication: Pulmonary haemosiderosis
     Dosage: 15MG/KG/D
     Route: 065
  4. CEFTRIAXONE [Suspect]
     Active Substance: CEFTRIAXONE
     Indication: Pulmonary haemosiderosis
     Dosage: 75MG/KG/D
     Route: 065
  5. ENALAPRIL [Concomitant]
     Active Substance: ENALAPRIL
     Indication: Focal segmental glomerulosclerosis
     Route: 065
  6. HYDROXYCHLOROQUINE [Suspect]
     Active Substance: HYDROXYCHLOROQUINE
     Indication: Pulmonary haemosiderosis
     Dosage: 4MG/KG/D
     Route: 065
  7. HYDROXYCHLOROQUINE [Suspect]
     Active Substance: HYDROXYCHLOROQUINE
     Indication: Pulmonary haemosiderosis
     Route: 065
  8. METHYLPREDNISOLONE [Suspect]
     Active Substance: METHYLPREDNISOLONE
     Indication: Pulmonary haemosiderosis
     Route: 065

REACTIONS (4)
  - Neuropsychological symptoms [Recovered/Resolved]
  - Product use in unapproved indication [Unknown]
  - Haemoptysis [Recovered/Resolved]
  - Disease recurrence [Recovered/Resolved]
